FAERS Safety Report 8451190-5 (Version None)
Quarter: 2012Q2

REPORT INFORMATION
  Report Type: 
  Country: None (occurrence: None)
  Receive Date: 20120620
  Receipt Date: 20120329
  Transmission Date: 20120825
  Serious: No
  Sender: FDA-Public Use
  Company Number: US-VERTEX PHARMACEUTICALS INC.-AE-2011-003734

PATIENT
  Sex: Male
  Weight: 74.91 kg

DRUGS (4)
  1. INCIVEK [Suspect]
     Indication: HEPATITIS C
     Route: 048
     Dates: start: 20110914, end: 20111201
  2. RIBAVIRIN [Concomitant]
     Indication: HEPATITIS C
     Route: 048
     Dates: start: 20110914, end: 20120316
  3. PEGASYS [Concomitant]
     Indication: HEPATITIS C
     Route: 058
     Dates: start: 20110914, end: 20120316
  4. DIAZEPAM [Concomitant]
     Indication: ANXIETY
     Route: 048

REACTIONS (2)
  - RASH PRURITIC [None]
  - ALOPECIA [None]
